FAERS Safety Report 11589253 (Version 1)
Quarter: 2015Q4

REPORT INFORMATION
  Report Type: Spontaneous
  Country: HR (occurrence: HR)
  Receive Date: 20151002
  Receipt Date: 20151002
  Transmission Date: 20160304
  Serious: Yes (Hospitalization, Other)
  Sender: FDA-Public Use
  Company Number: HR-PFIZER INC-2015327304

PATIENT
  Age: 57 Year
  Sex: Male

DRUGS (5)
  1. SULFASALAZINE. [Suspect]
     Active Substance: SULFASALAZINE
     Dosage: 1 G, 2X/DAY
     Dates: start: 200812
  2. METHOTREXATE SODIUM. [Suspect]
     Active Substance: METHOTREXATE SODIUM
     Dosage: 10-15-20, WEEKLY
     Dates: start: 200902
  3. SULFASALAZINE. [Suspect]
     Active Substance: SULFASALAZINE
     Dosage: UNK
  4. PREDNISON [Suspect]
     Active Substance: PREDNISONE
     Dosage: 20 MG, UNK
     Dates: start: 200812
  5. INDOMETACIN [Suspect]
     Active Substance: INDOMETHACIN
     Dosage: 100 MG, UNK
     Dates: start: 200812

REACTIONS (2)
  - Ankylosing spondylitis [Recovered/Resolved]
  - Disease recurrence [Recovered/Resolved]

NARRATIVE: CASE EVENT DATE: 200902
